FAERS Safety Report 22660567 (Version 2)
Quarter: 2023Q4

REPORT INFORMATION
  Report Type: Spontaneous
  Country: US (occurrence: US)
  Receive Date: 20230630
  Receipt Date: 20231109
  Transmission Date: 20240110
  Serious: Yes (Hospitalization)
  Sender: FDA-Public Use
  Company Number: US-VERTEX PHARMACEUTICALS-2023-009382

PATIENT

DRUGS (2)
  1. TRIKAFTA [Suspect]
     Active Substance: ELEXACAFTOR\IVACAFTOR\TEZACAFTOR
     Indication: Cystic fibrosis
     Dosage: FREQ UNK
     Route: 048
     Dates: start: 202001
  2. PULMOZYME [Concomitant]
     Active Substance: DORNASE ALFA

REACTIONS (7)
  - Blood glucose abnormal [Unknown]
  - Hospitalisation [Unknown]
  - COVID-19 [Unknown]
  - Respiratory syncytial virus infection [Unknown]
  - Asthenia [Not Recovered/Not Resolved]
  - Underweight [Unknown]
  - Influenza [Unknown]

NARRATIVE: CASE EVENT DATE: 20220801
